FAERS Safety Report 6308552-1 (Version None)
Quarter: 2009Q3

REPORT INFORMATION
  Report Type: 
  Country: None (occurrence: None)
  Receive Date: 20090813
  Receipt Date: 20090811
  Transmission Date: 20100115
  Serious: No
  Sender: FDA-Public Use
  Company Number: US-B.I. PHARMACEUTICALS,INC./RIDGEFIELD-2009-BP-09490BP

PATIENT
  Sex: Male

DRUGS (3)
  1. SPIRIVA [Suspect]
     Indication: PNEUMONIA
     Dosage: 18 MCG
     Route: 055
     Dates: start: 20090810
  2. ZITHROMAX [Concomitant]
     Indication: PNEUMONIA
     Route: 048
     Dates: start: 20090807, end: 20090811
  3. ADVAIR HFA [Concomitant]
     Indication: PNEUMONIA
     Dates: start: 20090807

REACTIONS (1)
  - DYSPHONIA [None]
